FAERS Safety Report 12526594 (Version 3)
Quarter: 2016Q3

REPORT INFORMATION
  Report Type: Spontaneous
  Country: DE (occurrence: DE)
  Receive Date: 20160705
  Receipt Date: 20160711
  Transmission Date: 20161109
  Serious: Yes (Death)
  Sender: FDA-Public Use
  Company Number: PHHY2016DE090843

PATIENT
  Sex: Male

DRUGS (1)
  1. ENTRESTO [Suspect]
     Active Substance: SACUBITRIL\VALSARTAN
     Indication: CARDIAC FAILURE
     Dosage: 1 DF, QD
     Route: 065
     Dates: start: 20160224, end: 20160307

REACTIONS (4)
  - Drug ineffective [Unknown]
  - Prescribed underdose [Unknown]
  - Sudden cardiac death [Fatal]
  - Malaise [Unknown]

NARRATIVE: CASE EVENT DATE: 201605
